FAERS Safety Report 12283869 (Version 1)
Quarter: 2016Q2

REPORT INFORMATION
  Report Type: Spontaneous
  Country: US (occurrence: US)
  Receive Date: 20160419
  Receipt Date: 20160419
  Transmission Date: 20160815
  Serious: No
  Sender: FDA-Public Use
  Company Number: US-BANPHARM-20154188

PATIENT
  Age: 85 Year
  Sex: Male
  Weight: 90.72 kg

DRUGS (4)
  1. ALEVE [Suspect]
     Active Substance: NAPROXEN SODIUM
     Indication: PAIN
     Dosage: 1 DF, PRN,
     Route: 048
     Dates: start: 2009
  2. VITAMIN C [Suspect]
     Active Substance: ASCORBIC ACID
  3. VITAMIN D [Concomitant]
     Active Substance: CHOLECALCIFEROL
  4. AMPRIZAL [Concomitant]

REACTIONS (2)
  - Product size issue [Unknown]
  - Foreign body [Unknown]
